FAERS Safety Report 22000343 (Version 1)
Quarter: 2023Q1

REPORT INFORMATION
  Report Type: Spontaneous
  Country: US (occurrence: None)
  Receive Date: 20230215
  Receipt Date: 20230215
  Transmission Date: 20230417
  Serious: Yes (Other)
  Sender: FDA-Public Use
  Company Number: None

PATIENT
  Age: 65 Year
  Sex: Male
  Weight: 77.04 kg

DRUGS (2)
  1. CARBAMAZEPINE [Suspect]
     Active Substance: CARBAMAZEPINE
     Indication: Mood swings
     Dosage: FREQUENCY : TWICE A DAY;?
     Route: 048
     Dates: start: 20221220, end: 20221229
  2. INVEGA SUSTENNA [Concomitant]
     Active Substance: PALIPERIDONE PALMITATE

REACTIONS (4)
  - Irritability [None]
  - Grandiosity [None]
  - Tangentiality [None]
  - Hyponatraemia [None]

NARRATIVE: CASE EVENT DATE: 20221227
